FAERS Safety Report 24036797 (Version 1)
Quarter: 2024Q3

REPORT INFORMATION
  Report Type: Spontaneous
  Country: US (occurrence: None)
  Receive Date: 20240701
  Receipt Date: 20240701
  Transmission Date: 20241017
  Serious: Yes (Hospitalization)
  Sender: Public
  Company Number: None

PATIENT
  Age: 60 Year
  Sex: Female

DRUGS (11)
  1. TOBRAMYCIN [Suspect]
     Active Substance: TOBRAMYCIN\TOBRAMYCIN SULFATE
     Indication: Cystic fibrosis
     Dosage: FREQUENCY : AS DIRECTED;?
     Route: 055
     Dates: start: 20230920
  2. ICAYSTON INH 75MG [Concomitant]
  3. LEXAPRO TAB 20MG [Concomitant]
  4. PARI LC PLUS NEBULIZER [Concomitant]
  5. PREDNISONE [Concomitant]
     Active Substance: PREDNISONE
  6. STERILE WATER FOR INJECTI [Concomitant]
  7. SYMBICORT AER 160-4.5 [Concomitant]
  8. ITIZANIDINE TAB2MG [Concomitant]
  9. ITRIKAFTA [Concomitant]
  10. ITRIKAFTA TAB [Concomitant]
  11. VANCOMYCIN HYDROCHLORIDE [Concomitant]
     Active Substance: VANCOMYCIN HYDROCHLORIDE

REACTIONS (3)
  - Dyspnoea [None]
  - Respiratory tract infection [None]
  - Pneumonia [None]

NARRATIVE: CASE EVENT DATE: 20240609
